FAERS Safety Report 24675911 (Version 1)
Quarter: 2024Q4

REPORT INFORMATION
  Report Type: Spontaneous
  Country: PL (occurrence: PL)
  Receive Date: 20241128
  Receipt Date: 20241128
  Transmission Date: 20250115
  Serious: Yes (Other)
  Sender: PURDUE
  Company Number: PL-PURDUE-USA-2024-0313577

PATIENT
  Age: 46 Year
  Sex: Female

DRUGS (7)
  1. DRONABINOL [Interacting]
     Active Substance: DRONABINOL
     Indication: Fibromyalgia
     Dosage: UNK
     Route: 048
  2. CANNABIDIOL [Interacting]
     Active Substance: CANNABIDIOL
     Indication: Fibromyalgia
     Dosage: UNK
     Route: 065
  3. CANNABIS SATIVA SUBSP. INDICA TOP [Interacting]
     Active Substance: CANNABIS SATIVA SUBSP. INDICA TOP
     Indication: Fibromyalgia
     Dosage: UNK
     Route: 065
  4. FLUVOXAMINE [Interacting]
     Active Substance: FLUVOXAMINE
     Indication: Product used for unknown indication
     Dosage: 100 MILLIGRAM, DAILY
     Route: 065
  5. PREGABALIN [Concomitant]
     Active Substance: PREGABALIN
     Indication: Product used for unknown indication
     Dosage: UNK
     Route: 065
  6. PITAVASTATIN [Concomitant]
     Active Substance: PITAVASTATIN
     Indication: Product used for unknown indication
     Dosage: UNK
     Route: 065
  7. EZETIMIBE [Concomitant]
     Active Substance: EZETIMIBE
     Indication: Product used for unknown indication
     Dosage: UNK
     Route: 065

REACTIONS (6)
  - Hallucination, auditory [Unknown]
  - Tachypnoea [Unknown]
  - Dysarthria [Unknown]
  - Tachycardia [Unknown]
  - Drug interaction [Unknown]
  - Product use in unapproved indication [Unknown]
